FAERS Safety Report 5422377-0 (Version None)
Quarter: 2007Q3

REPORT INFORMATION
  Report Type: 
  Country: None (occurrence: None)
  Receive Date: 20070822
  Receipt Date: 20070820
  Transmission Date: 20080115
  Serious: Yes (Other)
  Sender: FDA-Public Use
  Company Number: A0661933A

PATIENT
  Age: 67 Year
  Sex: Female
  Weight: 95.5 kg

DRUGS (5)
  1. AVANDIA [Suspect]
     Dosage: 4MG TWICE PER DAY
     Route: 048
     Dates: start: 20020101, end: 20070606
  2. GLYBURIDE [Concomitant]
  3. METFORMIN HCL [Concomitant]
  4. COZAAR [Concomitant]
     Indication: HYPERTENSION
  5. VYTORIN [Concomitant]
     Indication: LIPIDS INCREASED

REACTIONS (6)
  - FLUID RETENTION [None]
  - OEDEMA [None]
  - OEDEMA PERIPHERAL [None]
  - PAIN IN EXTREMITY [None]
  - RENAL IMPAIRMENT [None]
  - WEIGHT INCREASED [None]
